FAERS Safety Report 23302204 (Version 1)
Quarter: 2023Q4

REPORT INFORMATION
  Report Type: Spontaneous
  Country: HK (occurrence: HK)
  Receive Date: 20231215
  Receipt Date: 20231215
  Transmission Date: 20240110
  Serious: Yes (Death, Life-Threatening, Other)
  Sender: FDA-Public Use
  Company Number: HK-PFIZER INC-202300440762

PATIENT
  Age: 73 Year
  Sex: Male

DRUGS (7)
  1. VORICONAZOLE [Suspect]
     Active Substance: VORICONAZOLE
     Indication: Bronchopulmonary aspergillosis
     Dosage: 400 MG, DAILY
  2. ACETAMINOPHEN [Suspect]
     Active Substance: ACETAMINOPHEN
     Indication: Pain
     Dosage: 4 G/DAY
     Route: 048
  3. METRONIDAZOLE [Concomitant]
     Active Substance: METRONIDAZOLE
     Indication: Antibiotic therapy
     Dosage: UNK
     Route: 042
  4. CEFOPERAZONE\SULBACTAM [Concomitant]
     Active Substance: CEFOPERAZONE\SULBACTAM
     Indication: Antibiotic therapy
     Dosage: UNK
     Route: 042
  5. PIPERACILLIN SODIUM\TAZOBACTAM SODIUM [Concomitant]
     Active Substance: PIPERACILLIN SODIUM\TAZOBACTAM SODIUM
     Indication: Antibiotic therapy
     Dosage: UNK
     Route: 042
  6. VANCOMYCIN [Concomitant]
     Active Substance: VANCOMYCIN
     Indication: Antibiotic therapy
     Dosage: UNK
     Route: 042
  7. MEROPENEM [Concomitant]
     Active Substance: MEROPENEM
     Indication: Antibiotic therapy
     Dosage: UNK
     Route: 042

REACTIONS (2)
  - Drug ineffective [Fatal]
  - Pyroglutamic acidosis [Recovered/Resolved]
